FAERS Safety Report 9381938 (Version 2)
Quarter: 2014Q2

REPORT INFORMATION
  Report Type: Spontaneous
  Country: US (occurrence: US)
  Receive Date: 20130703
  Receipt Date: 20140411
  Transmission Date: 20141212
  Serious: Yes (Death, Other)
  Sender: FDA-Public Use
  Company Number: US-B.I. PHARMACEUTICALS,INC./RIDGEFIELD-2013-BI-18908BP

PATIENT
  Sex: Female

DRUGS (7)
  1. PRADAXA [Suspect]
     Indication: CEREBROVASCULAR ACCIDENT PROPHYLAXIS
     Route: 065
     Dates: start: 201104, end: 201107
  2. PRADAXA [Suspect]
     Indication: THROMBOSIS PROPHYLAXIS
  3. METHOTREXATE [Concomitant]
     Route: 065
  4. LOTRISONE [Concomitant]
     Route: 065
  5. DILTIAZEM [Concomitant]
     Route: 065
  6. MINOCYCLINE [Concomitant]
     Route: 065
  7. SULFAMETHOXAZOLE [Concomitant]
     Route: 065

REACTIONS (2)
  - Gastrointestinal haemorrhage [Fatal]
  - Respiratory failure [Unknown]
